FAERS Safety Report 5571487-6 (Version None)
Quarter: 2007Q4

REPORT INFORMATION
  Report Type: 
  Country: None (occurrence: None)
  Receive Date: 20071221
  Receipt Date: 20071217
  Transmission Date: 20080405
  Serious: Yes (Hospitalization, Other)
  Sender: FDA-Public Use
  Company Number: PHHO2007TR17130

PATIENT
  Age: 28 Year
  Sex: Female
  Weight: 42 kg

DRUGS (2)
  1. DESFERAL [Suspect]
     Indication: HAEMOSIDEROSIS
     Dosage: 30 MG/KG, QD
     Route: 048
     Dates: start: 20030806, end: 20071025
  2. ESTROGEN NOS [Concomitant]
     Indication: CONTRACEPTION
     Dates: start: 20070615

REACTIONS (11)
  - ABDOMINAL PAIN UPPER [None]
  - BLOOD AMYLASE INCREASED [None]
  - CHOLESTASIS [None]
  - DUODENAL ULCER [None]
  - GASTRITIS [None]
  - LIPASE INCREASED [None]
  - LIVER FUNCTION TEST ABNORMAL [None]
  - NERVE CONDUCTION STUDIES ABNORMAL [None]
  - OPTIC NEUROPATHY [None]
  - VISION BLURRED [None]
  - WEIGHT DECREASED [None]
